FAERS Safety Report 5067430-9 (Version None)
Quarter: 2006Q3

REPORT INFORMATION
  Report Type: 
  Country: None (occurrence: None)
  Receive Date: 20060726
  Receipt Date: 20060711
  Transmission Date: 20061208
  Serious: Yes (Hospitalization)
  Sender: FDA-Public Use
  Company Number: 29554

PATIENT
  Age: 78 Year
  Sex: Female

DRUGS (6)
  1. DICOTRINE (GLYCERYL TRINITRATE) [Suspect]
     Dosage: 1 DOSAGE FORMS (1 DOSAGE FORMS, 1 IN 1 DAY (S)), TRANSDERMAL
     Route: 062
     Dates: start: 20051126
  2. MEDIATENSYL (URAPIDIL) [Suspect]
     Indication: ESSENTIAL HYPERTENSION
     Dosage: 2 DOSAGE FORMS (1 DOSAGE FORMS, 2 IN 1 DAY (S)) ORAL
     Route: 048
     Dates: start: 20051126
  3. AMLODIPINE BESYLATE [Suspect]
     Indication: ESSENTIAL HYPERTENSION
     Dosage: 10 MG (10 MG, 1 IN 1 DAY (S)), ORAL
     Route: 048
     Dates: start: 20051126
  4. CORDARONE [Concomitant]
  5. POTASSIUM CHLORIDE [Concomitant]
  6. LEVOTHYROXINE SODIUM [Concomitant]

REACTIONS (3)
  - MALAISE [None]
  - ORTHOSTATIC HYPOTENSION [None]
  - SYNCOPE [None]
